FAERS Safety Report 7460278-7 (Version None)
Quarter: 2011Q2

REPORT INFORMATION
  Report Type: 
  Country: None (occurrence: None)
  Receive Date: 20110505
  Receipt Date: 20110329
  Transmission Date: 20111010
  Serious: Yes (Other)
  Sender: FDA-Public Use
  Company Number: B0710812A

PATIENT
  Age: 31 Year
  Sex: Female
  Weight: 81 kg

DRUGS (1)
  1. ALLI [Suspect]
     Dosage: 1CAP THREE TIMES PER DAY
     Route: 065

REACTIONS (5)
  - MENSTRUAL DISORDER [None]
  - DIZZINESS [None]
  - NAUSEA [None]
  - HAEMATEMESIS [None]
  - HAEMOPTYSIS [None]
